FAERS Safety Report 9973720 (Version 1)
Quarter: 2014Q1

REPORT INFORMATION
  Report Type: Spontaneous
  Country: FI (occurrence: FI)
  Receive Date: 20140306
  Receipt Date: 20140306
  Transmission Date: 20141002
  Serious: Yes (Death, Other)
  Sender: FDA-Public Use
  Company Number: FI-TEVA-466242ISR

PATIENT
  Age: 70 Year
  Sex: Male

DRUGS (4)
  1. OXAZEPAM [Suspect]
     Route: 065
  2. TEMAZEPAM [Suspect]
     Route: 065
  3. DIAZEPAM [Concomitant]
     Indication: EPILEPSY
     Dosage: AS NEEDED
     Route: 042
  4. TRIMETHOPRIM [Concomitant]
     Route: 065

REACTIONS (3)
  - Poisoning deliberate [Fatal]
  - Loss of consciousness [Recovered/Resolved]
  - Dyspnoea [Recovered/Resolved]
